FAERS Safety Report 6291349-9 (Version None)
Quarter: 2009Q3

REPORT INFORMATION
  Report Type: 
  Country: None (occurrence: None)
  Receive Date: 20090730
  Receipt Date: 20090727
  Transmission Date: 20100115
  Serious: Yes (Disabling)
  Sender: FDA-Public Use
  Company Number: FR-BRISTOL-MYERS SQUIBB COMPANY-14658710

PATIENT
  Age: 16 Year
  Sex: Female
  Weight: 84 kg

DRUGS (2)
  1. ABILIFY [Suspect]
     Indication: DEPRESSION
     Dosage: DOSE REDUCED TO 5MG/DAY ON 20MAY09
     Route: 048
     Dates: start: 20090405
  2. PROZAC [Concomitant]
     Indication: DEPRESSION
     Route: 048

REACTIONS (1)
  - URINARY INCONTINENCE [None]
